FAERS Safety Report 18599151 (Version 1)
Quarter: 2020Q4

REPORT INFORMATION
  Report Type: Spontaneous
  Country: US (occurrence: US)
  Receive Date: 20201210
  Receipt Date: 20201210
  Transmission Date: 20210114
  Serious: Yes (Other)
  Sender: FDA-Public Use
  Company Number: US-DRREDDYS-USA/USA/20/0129964

PATIENT
  Age: 31 Year
  Sex: Male

DRUGS (5)
  1. BACLOFEN. [Suspect]
     Active Substance: BACLOFEN
     Indication: AMYOTROPHIC LATERAL SCLEROSIS
  2. CLONAZEPAM. [Suspect]
     Active Substance: CLONAZEPAM
     Indication: AMYOTROPHIC LATERAL SCLEROSIS
  3. LORAZEPAM INJECTION USP, 2 MG/ML AND 4 MG/ML [Suspect]
     Active Substance: LORAZEPAM
     Indication: AMYOTROPHIC LATERAL SCLEROSIS
  4. DIAZEPAM. [Suspect]
     Active Substance: DIAZEPAM
     Indication: AMYOTROPHIC LATERAL SCLEROSIS
  5. TIZANIDINE HYDROCHLORIDE. [Suspect]
     Active Substance: TIZANIDINE HYDROCHLORIDE
     Indication: AMYOTROPHIC LATERAL SCLEROSIS

REACTIONS (1)
  - Treatment failure [Unknown]
